FAERS Safety Report 5679858-4 (Version None)
Quarter: 2008Q1

REPORT INFORMATION
  Report Type: 
  Country: None (occurrence: None)
  Receive Date: 20080324
  Receipt Date: 20080306
  Transmission Date: 20080703
  Serious: Yes (Other)
  Sender: FDA-Public Use
  Company Number: WAES 0803GBR00029

PATIENT
  Age: 88 Year

DRUGS (1)
  1. ZOCOR [Suspect]
     Indication: BLOOD CHOLESTEROL INCREASED
     Dosage: 40 MG PO
     Route: 048
     Dates: start: 20050101, end: 20050101

REACTIONS (1)
  - ACUTE MYOCARDIAL INFARCTION [None]
